FAERS Safety Report 18204806 (Version 8)
Quarter: 2021Q1

REPORT INFORMATION
  Report Type: Report from Study
  Country: PA (occurrence: PA)
  Receive Date: 20200827
  Receipt Date: 20210323
  Transmission Date: 20210419
  Serious: Yes (Other)
  Sender: FDA-Public Use
  Company Number: NVSC2020PA235582

PATIENT
  Age: 67 Year
  Sex: Female

DRUGS (3)
  1. ZOMETA [Suspect]
     Active Substance: ZOLEDRONIC ACID
     Indication: BREAST CANCER
     Dosage: UNK (EVERY 3 MONTHS)
     Route: 065
  2. KISQALI [Suspect]
     Active Substance: RIBOCICLIB
     Indication: BREAST CANCER METASTATIC
     Dosage: 400 MG, QD (AT 9 PM)
     Route: 048
     Dates: start: 20191016
  3. FULVESTRANT. [Suspect]
     Active Substance: FULVESTRANT
     Indication: BREAST CANCER
     Dosage: UNK UNK, QMO (EACH MONTH)
     Route: 065

REACTIONS (22)
  - Nail disorder [Unknown]
  - Arthralgia [Not Recovered/Not Resolved]
  - Stress [Unknown]
  - Inflammation [Unknown]
  - Nail discolouration [Not Recovered/Not Resolved]
  - Fear [Unknown]
  - Carpal tunnel syndrome [Unknown]
  - Neck pain [Unknown]
  - Insomnia [Unknown]
  - Peripheral swelling [Unknown]
  - Tumour marker increased [Recovering/Resolving]
  - Clavicle fracture [Unknown]
  - Fatigue [Unknown]
  - Skin discolouration [Unknown]
  - Skull X-ray abnormal [Unknown]
  - Musculoskeletal chest pain [Unknown]
  - Onychoclasis [Not Recovered/Not Resolved]
  - Tooth loss [Unknown]
  - Tooth disorder [Unknown]
  - Vertebral lesion [Recovered/Resolved]
  - Chest X-ray abnormal [Unknown]
  - Back pain [Unknown]

NARRATIVE: CASE EVENT DATE: 202008
